FAERS Safety Report 13583098 (Version 3)
Quarter: 2019Q1

REPORT INFORMATION
  Report Type: Report from Study
  Country: US (occurrence: US)
  Receive Date: 20170525
  Receipt Date: 20190221
  Transmission Date: 20190417
  Serious: Yes (Hospitalization)
  Sender: FDA-Public Use
  Company Number: US-BAUSCH-BL-2017-017191

PATIENT
  Age: 55 Year
  Sex: Male
  Weight: 86.26 kg

DRUGS (4)
  1. XIFAXAN [Suspect]
     Active Substance: RIFAXIMIN
     Dosage: ONCE DAILY OR TWICE DAILY
     Route: 048
  2. XIFAXAN [Suspect]
     Active Substance: RIFAXIMIN
     Indication: HEPATIC CIRRHOSIS
     Route: 048
     Dates: start: 2015
  3. XIFAXAN [Suspect]
     Active Substance: RIFAXIMIN
     Indication: CHRONIC HEPATIC FAILURE
     Dosage: DOSE REDUCED
     Route: 048
  4. XIFAXAN [Suspect]
     Active Substance: RIFAXIMIN
     Dosage: RE-STARTED
     Route: 048
     Dates: start: 2017

REACTIONS (7)
  - Confusional state [Unknown]
  - Inability to afford medication [Unknown]
  - Treatment noncompliance [Not Recovered/Not Resolved]
  - Ammonia increased [Recovered/Resolved]
  - Stent placement [Unknown]
  - Therapy cessation [Recovered/Resolved]
  - Product availability issue [Recovered/Resolved]

NARRATIVE: CASE EVENT DATE: 20170518
